FAERS Safety Report 8386568-1 (Version None)
Quarter: 2012Q2

REPORT INFORMATION
  Report Type: 
  Country: None (occurrence: None)
  Receive Date: 20120525
  Receipt Date: 20110823
  Transmission Date: 20120825
  Serious: No
  Sender: FDA-Public Use
  Company Number: US-GLAXOSMITHKLINE-A0942007A

PATIENT
  Age: 60 Year
  Sex: Female

DRUGS (11)
  1. ATENOLOL [Concomitant]
  2. LORAZEPAM [Concomitant]
  3. VITAMIN TAB [Concomitant]
  4. RISPERIDONE [Concomitant]
  5. UNSPECIFIED DRUG [Concomitant]
  6. IMODIUM [Concomitant]
  7. VITAMIN TAB [Concomitant]
  8. CHLORPHENIRAMINE MALEATE [Concomitant]
  9. VERAMYST [Suspect]
     Indication: RHINITIS ALLERGIC
     Dosage: 2SPR PER DAY
     Route: 045
     Dates: start: 20110823, end: 20110823
  10. ECHINACEA [Concomitant]
  11. ZANTAC [Concomitant]

REACTIONS (7)
  - ABDOMINAL DISCOMFORT [None]
  - HEADACHE [None]
  - NASAL DRYNESS [None]
  - ACCIDENTAL EXPOSURE [None]
  - EYE IRRITATION [None]
  - DIARRHOEA [None]
  - SINUS HEADACHE [None]
